FAERS Safety Report 9753161 (Version 2)
Quarter: 2015Q3

REPORT INFORMATION
  Report Type: Spontaneous
  Country: US (occurrence: US)
  Receive Date: 20131213
  Receipt Date: 20150805
  Transmission Date: 20151125
  Serious: No
  Sender: FDA-Public Use
  Company Number: US-GILEAD-2010-0026781

PATIENT
  Age: 77 Year
  Sex: Female
  Weight: 81.65 kg

DRUGS (13)
  1. GARLIC. [Concomitant]
     Active Substance: GARLIC
  2. ASPIRIN. [Concomitant]
     Active Substance: ASPIRIN
  3. LASIX [Concomitant]
     Active Substance: FUROSEMIDE
  4. POTASSIUM CHLORIDE. [Concomitant]
     Active Substance: POTASSIUM CHLORIDE
  5. NAPROSYN [Concomitant]
     Active Substance: NAPROXEN
  6. ZYRTEC [Concomitant]
     Active Substance: CETIRIZINE HYDROCHLORIDE
  7. LEXAPRO [Concomitant]
     Active Substance: ESCITALOPRAM OXALATE
  8. ISOSORBIDE MN [Concomitant]
     Active Substance: ISOSORBIDE MONONITRATE
  9. PREVACID [Concomitant]
     Active Substance: LANSOPRAZOLE
  10. ULTRA MEGA VITAMIN [Concomitant]
  11. LETAIRIS [Suspect]
     Active Substance: AMBRISENTAN
     Indication: PULMONARY ARTERIAL HYPERTENSION
     Route: 048
     Dates: start: 20090629
  12. PLAVIX [Concomitant]
     Active Substance: CLOPIDOGREL BISULFATE
  13. SOTALOL. [Concomitant]
     Active Substance: SOTALOL

REACTIONS (1)
  - Pain [Unknown]
